FAERS Safety Report 8151673-1 (Version None)
Quarter: 2012Q1

REPORT INFORMATION
  Report Type: 
  Country: None (occurrence: None)
  Receive Date: 20120220
  Receipt Date: 20120214
  Transmission Date: 20120608
  Serious: Yes (Death, Hospitalization, Other)
  Sender: FDA-Public Use
  Company Number: US-ASTRAZENECA-2010SE43958

PATIENT
  Age: 57 Year
  Sex: Female

DRUGS (1)
  1. SYMBICORT [Suspect]
     Indication: ASTHMA
     Dosage: 80/ 4.5 MCG TWO PUFFS BID
     Route: 055
     Dates: start: 20090101

REACTIONS (3)
  - DEATH [None]
  - RENAL NEOPLASM [None]
  - METASTASES TO BONE [None]
